FAERS Safety Report 7169280-6 (Version None)
Quarter: 2010Q4

REPORT INFORMATION
  Report Type: 
  Country: None (occurrence: None)
  Receive Date: 20101216
  Receipt Date: 20100108
  Transmission Date: 20110411
  Serious: No
  Sender: FDA-Public Use
  Company Number: US-AMGEN-KDL384394

PATIENT

DRUGS (13)
  1. ENBREL [Suspect]
     Indication: PRODUCT USED FOR UNKNOWN INDICATION
     Dosage: 50 MG, QWK
     Route: 058
  2. XALATAN [Concomitant]
  3. PREDNISONE [Concomitant]
     Dosage: 20 MG, UNK
  4. MELOXICAM [Concomitant]
     Dosage: 15 MG, UNK
  5. TRAMADOL HCL [Concomitant]
     Dosage: 300 MG, UNK
  6. OMEPRAZOLE [Concomitant]
     Dosage: 20 MG, UNK
  7. FLUOXETINE [Concomitant]
     Dosage: 40 MG, UNK
  8. HYDROXYCHLOROQUINE [Concomitant]
     Dosage: 200 MG, UNK
  9. FOLIC ACID [Concomitant]
     Dosage: 1 MG, UNK
  10. OXYCODONE HCL [Concomitant]
     Dosage: 5 MG, UNK
  11. SULFASALAZINE [Concomitant]
     Dosage: 500 MG, UNK
  12. UNKNOWN DRUG[INGREDIENT UNKNOWN] [Concomitant]
  13. ASPIRIN [Concomitant]

REACTIONS (2)
  - PAIN [None]
  - RHEUMATOID ARTHRITIS [None]
